FAERS Safety Report 5334927-3 (Version None)
Quarter: 2007Q2

REPORT INFORMATION
  Report Type: 
  Country: None (occurrence: None)
  Receive Date: 20070525
  Receipt Date: 20070514
  Transmission Date: 20071010
  Serious: Yes (Death, Hospitalization)
  Sender: FDA-Public Use
  Company Number: ES-ROCHE-496725

PATIENT
  Age: 74 Year
  Sex: Male
  Weight: 88 kg

DRUGS (7)
  1. CAPECITABINE [Suspect]
     Route: 048
     Dates: start: 20070418
  2. BEVACIZUMAB [Suspect]
     Route: 042
     Dates: start: 20070418
  3. METOCLOPRAMIDE [Concomitant]
     Dates: start: 20070418
  4. OMEPRAZOLE [Concomitant]
     Dates: start: 20070418
  5. LOPERAMIDE HCL [Concomitant]
     Dosage: PRN
     Dates: start: 20070418
  6. FLUCONAZOLE [Concomitant]
     Dates: start: 20070418, end: 20070428
  7. NISTATIN [Concomitant]
     Dates: start: 20070418

REACTIONS (1)
  - MUCOSAL INFLAMMATION [None]
